FAERS Safety Report 26172341 (Version 1)
Quarter: 2025Q4

REPORT INFORMATION
  Report Type: Spontaneous
  Country: CN (occurrence: CN)
  Receive Date: 20251218
  Receipt Date: 20251218
  Transmission Date: 20260118
  Serious: Yes (Death, Life-Threatening, Hospitalization, Other)
  Sender: UNICHEM
  Company Number: CN-UNICHEM LABORATORIES LIMITED-UNI-2025-CN-004140

PATIENT

DRUGS (2)
  1. AMLODIPINE [Suspect]
     Active Substance: AMLODIPINE BESYLATE
     Indication: Hypertension
     Dosage: 5 MILLIGRAM, QD
     Route: 065
  2. AMLODIPINE [Suspect]
     Active Substance: AMLODIPINE BESYLATE
     Dosage: 48 TABLET
     Route: 065

REACTIONS (8)
  - Circulatory collapse [Fatal]
  - Distributive shock [Fatal]
  - Toxicity to various agents [Fatal]
  - Hypotension [Fatal]
  - Accidental overdose [Fatal]
  - Metabolic acidosis [Fatal]
  - Hypocalcaemia [Fatal]
  - Syncope [Fatal]

NARRATIVE: CASE EVENT DATE: 20241203
